FAERS Safety Report 6254975-9 (Version None)
Quarter: 2009Q3

REPORT INFORMATION
  Report Type: 
  Country: None (occurrence: None)
  Receive Date: 20090702
  Receipt Date: 20090624
  Transmission Date: 20100115
  Serious: Yes (Hospitalization, Disabling, Other)
  Sender: FDA-Public Use
  Company Number: US-MERCK-0708USA00140

PATIENT
  Age: 65 Year
  Sex: Female

DRUGS (5)
  1. FOSAMAX [Suspect]
     Route: 048
     Dates: start: 20010814
  2. FOSAMAX [Suspect]
     Route: 048
     Dates: start: 20020823, end: 20060523
  3. SINEMET [Concomitant]
     Indication: PARKINSON'S DISEASE
     Route: 048
     Dates: start: 19830101
  4. MIRAPEX [Concomitant]
     Indication: PARKINSON'S DISEASE
     Route: 065
     Dates: start: 19970101
  5. AMANTADINE HYDROCHLORIDE [Concomitant]
     Indication: PARKINSON'S DISEASE
     Route: 065
     Dates: start: 20011229

REACTIONS (20)
  - ABDOMINAL MASS [None]
  - ANXIETY [None]
  - ARTHROPATHY [None]
  - BACK DISORDER [None]
  - FEAR [None]
  - FEMUR FRACTURE [None]
  - FRUSTRATION [None]
  - GAIT DISTURBANCE [None]
  - GOITRE [None]
  - LUMBAR RADICULOPATHY [None]
  - NERVOUSNESS [None]
  - OEDEMA PERIPHERAL [None]
  - OSTEOMYELITIS [None]
  - OSTEOPENIA [None]
  - OVARIAN CYST TORSION [None]
  - PAIN IN EXTREMITY [None]
  - POLYP [None]
  - SKIN PAPILLOMA [None]
  - SWELLING [None]
  - TOOTH ABSCESS [None]
